FAERS Safety Report 8065807-0 (Version None)
Quarter: 2012Q1

REPORT INFORMATION
  Report Type: 
  Country: None (occurrence: None)
  Receive Date: 20120124
  Receipt Date: 20120117
  Transmission Date: 20120608
  Serious: Yes (Other)
  Sender: FDA-Public Use
  Company Number: US-BAYER-200940909NA

PATIENT
  Sex: Male

DRUGS (3)
  1. ALL OTHER THERAPEUTIC PRODUCTS [Concomitant]
     Indication: PRODUCT USED FOR UNKNOWN INDICATION
     Dosage: AS NEEDED THROUGHOUT LIFETIME
  2. ANTIHYPERTENSIVES [Concomitant]
     Indication: HYPERTENSION
  3. TRASYLOL [Suspect]
     Indication: CORONARY ARTERY BYPASS
     Dosage: UNK
     Route: 042
     Dates: start: 19960101

REACTIONS (12)
  - FEAR [None]
  - PAIN [None]
  - ANHEDONIA [None]
  - INJURY [None]
  - DEPRESSION [None]
  - UNEVALUABLE EVENT [None]
  - DISABILITY [None]
  - RENAL INJURY [None]
  - ANXIETY [None]
  - RENAL FAILURE [None]
  - MULTI-ORGAN FAILURE [None]
  - RENAL DISORDER [None]
